FAERS Safety Report 24463876 (Version 1)
Quarter: 2024Q4

REPORT INFORMATION
  Report Type: Report from Study
  Country: US (occurrence: US)
  Receive Date: 20241018
  Receipt Date: 20241018
  Transmission Date: 20250115
  Serious: No
  Sender: ROCHE
  Company Number: US-ROCHE-3491847

PATIENT
  Age: 66 Year
  Sex: Female
  Weight: 86.0 kg

DRUGS (20)
  1. XOLAIR [Suspect]
     Active Substance: OMALIZUMAB
     Indication: Idiopathic urticaria
     Route: 058
  2. XOLAIR [Suspect]
     Active Substance: OMALIZUMAB
  3. FLONASE [Concomitant]
     Active Substance: FLUTICASONE PROPIONATE
  4. HYDROXYZINE [Concomitant]
     Active Substance: HYDROXYZINE HYDROCHLORIDE
  5. METOPROLOL [Concomitant]
     Active Substance: METOPROLOL
  6. PEPCID [Concomitant]
     Active Substance: FAMOTIDINE
  7. SINGULAIR [Concomitant]
     Active Substance: MONTELUKAST SODIUM
  8. TRELEGY ELLIPTA [Concomitant]
     Active Substance: FLUTICASONE FUROATE\UMECLIDINIUM BROMIDE\VILANTEROL TRIFENATATE
  9. ZYRTEC [Concomitant]
     Active Substance: CETIRIZINE HYDROCHLORIDE
  10. CELEXA [Concomitant]
     Active Substance: CITALOPRAM HYDROBROMIDE
  11. DITROPAN [Concomitant]
     Active Substance: OXYBUTYNIN CHLORIDE
  12. FISH OIL [Concomitant]
     Active Substance: FISH OIL
  13. HYDROCODONE [Concomitant]
     Active Substance: HYDROCODONE
  14. KETOROLAC [Concomitant]
     Active Substance: KETOROLAC TROMETHAMINE
  15. LOSARTAN [Concomitant]
     Active Substance: LOSARTAN
  16. MAGNESIUM HYDROXIDE [Concomitant]
     Active Substance: MAGNESIUM HYDROXIDE
  17. MELATONIN [Concomitant]
     Active Substance: MELATONIN
  18. METFORMIN [Concomitant]
     Active Substance: METFORMIN HYDROCHLORIDE
  19. SIMVASTATIN [Concomitant]
     Active Substance: SIMVASTATIN
  20. DICLOFENAC SODIUM [Concomitant]
     Active Substance: DICLOFENAC SODIUM

REACTIONS (5)
  - Blood glucose increased [Unknown]
  - Glomerular filtration rate decreased [Unknown]
  - Haemoglobin increased [Unknown]
  - Tryptase increased [Unknown]
  - Blood creatinine increased [Unknown]

NARRATIVE: CASE EVENT DATE: 20230908
